FAERS Safety Report 4747129-6 (Version None)
Quarter: 2005Q3

REPORT INFORMATION
  Report Type: 
  Country: None (occurrence: None)
  Receive Date: 20050815
  Receipt Date: 20050802
  Transmission Date: 20060218
  Serious: Yes (Death, Hospitalization, Other)
  Sender: FDA-Public Use
  Company Number: 2005109935

PATIENT
  Age: 41 Year
  Sex: Female

DRUGS (9)
  1. METHYLPREDNISOLONE SODIUM SUCCINATE [Suspect]
     Indication: RELAPSING-REMITTING MULTIPLE SCLEROSIS
     Dosage: 1000 MG (500 MG, 2 IN 1 D), INTRAVENOUS
     Route: 042
     Dates: start: 20010316, end: 20050109
  2. INTERFERON BETA-1A (INTERFERON BETA) [Suspect]
     Indication: RELAPSING-REMITTING MULTIPLE SCLEROSIS
     Dosage: (30 MCG, 1 IN 1 WK), INTRAMUSCULAR
     Route: 030
     Dates: start: 20000201, end: 20050101
  3. ALL OTHER THERAPEUTIC PRODUCTS (ALL OTHER THERAPEUTIC PRODUCTS) [Suspect]
     Indication: RELAPSING-REMITTING MULTIPLE SCLEROSIS
     Dosage: (300 MG, 1 4 WK), INTRAVENOUS
     Route: 042
     Dates: start: 20020412, end: 20050118
  4. DONEPEZIL HCL [Concomitant]
  5. TIZANIDINE HCL [Concomitant]
  6. GALANTAMINE (GALANTAMINE) [Concomitant]
  7. CITALOPRAM (CITALOPRAM) [Concomitant]
  8. ROFECOXIB [Concomitant]
  9. TRAMADOL HCL [Concomitant]

REACTIONS (6)
  - CACHEXIA [None]
  - CONDITION AGGRAVATED [None]
  - MULTIPLE SCLEROSIS [None]
  - PNEUMONIA ASPIRATION [None]
  - PROGRESSIVE MULTIFOCAL LEUKOENCEPHALOPATHY [None]
  - ROSAI-DORFMAN SYNDROME [None]
